FAERS Safety Report 8529094-9 (Version None)
Quarter: 2012Q3

REPORT INFORMATION
  Report Type: 
  Country: None (occurrence: None)
  Receive Date: 20120716
  Receipt Date: 20120716
  Transmission Date: 20120928
  Serious: Yes (Other)
  Sender: FDA-Public Use
  Company Number: None

PATIENT
  Sex: Female
  Weight: 61.2356 kg

DRUGS (1)
  1. ARICEPT [Suspect]
     Indication: DEMENTIA
     Dosage: 23 MG/DAY DAILY ORAL; MIDSUMMER 2011 TO MAY 2012
     Route: 048
     Dates: start: 20110101, end: 20120501

REACTIONS (1)
  - HEADACHE [None]
